FAERS Safety Report 5206914-7 (Version None)
Quarter: 2007Q1

REPORT INFORMATION
  Report Type: 
  Country: None (occurrence: None)
  Receive Date: 20070105
  Receipt Date: 20070105
  Transmission Date: 20070707
  Serious: Yes (Other)
  Sender: FDA-Public Use
  Company Number: None

PATIENT
  Age: 66 Year
  Sex: Female
  Weight: 56.246 kg

DRUGS (2)
  1. LEXAPRO [Suspect]
     Indication: ARTHRITIS
     Dosage: 10 MG 1 DAILY
     Dates: start: 20030613, end: 20030801
  2. LEXAPRO [Suspect]
     Indication: PAIN
     Dosage: 10 MG 1 DAILY
     Dates: start: 20030613, end: 20030801

REACTIONS (34)
  - ABDOMINAL DISTENSION [None]
  - ABDOMINAL PAIN [None]
  - ABNORMAL DREAMS [None]
  - ARTHRALGIA [None]
  - BACK PAIN [None]
  - BALANCE DISORDER [None]
  - BURNING SENSATION [None]
  - CHILLS [None]
  - CHOKING [None]
  - CORNEAL INFILTRATES [None]
  - CORNEAL OEDEMA [None]
  - DEREALISATION [None]
  - DIARRHOEA [None]
  - DIPLOPIA [None]
  - DYSKINESIA [None]
  - ECCHYMOSIS [None]
  - EYE IRRITATION [None]
  - FALL [None]
  - FLATULENCE [None]
  - GASTROOESOPHAGEAL REFLUX DISEASE [None]
  - HALLUCINATION [None]
  - HEADACHE [None]
  - HYPERHIDROSIS [None]
  - JOINT SWELLING [None]
  - PAIN IN EXTREMITY [None]
  - PALPITATIONS [None]
  - PARAESTHESIA [None]
  - PRURITUS GENERALISED [None]
  - PURULENCE [None]
  - RAYNAUD'S PHENOMENON [None]
  - RESTLESS LEGS SYNDROME [None]
  - SKIN ULCER [None]
  - VISION BLURRED [None]
  - VISUAL DISTURBANCE [None]
